FAERS Safety Report 9176156 (Version 2)
Quarter: 2015Q1

REPORT INFORMATION
  Report Type: Report from Study
  Country: US (occurrence: US)
  Receive Date: 20120921
  Receipt Date: 20150206
  Transmission Date: 20150721
  Serious: Yes (Death)
  Sender: FDA-Public Use
  Company Number: US-ROCHE-1123099

PATIENT
  Sex: Male

DRUGS (8)
  1. TEMSIROLIMUS [Concomitant]
     Active Substance: TEMSIROLIMUS
     Route: 042
  2. SOLU-MEDROL [Concomitant]
     Active Substance: METHYLPREDNISOLONE SODIUM SUCCINATE
     Route: 042
  3. AVASTIN [Suspect]
     Active Substance: BEVACIZUMAB
     Indication: OFF LABEL USE
  4. AVASTIN [Suspect]
     Active Substance: BEVACIZUMAB
     Indication: LYMPHOMA
     Route: 042
     Dates: start: 20091230
  5. LANTUS [Concomitant]
     Active Substance: INSULIN GLARGINE
     Route: 058
  6. AVASTIN [Suspect]
     Active Substance: BEVACIZUMAB
     Indication: SALIVARY GLAND CANCER
  7. DIPHENHYDRAMINE [Concomitant]
     Active Substance: DIPHENHYDRAMINE
     Route: 042
  8. TEMSIROLIMUS [Concomitant]
     Active Substance: TEMSIROLIMUS
     Route: 042

REACTIONS (3)
  - Diarrhoea [Unknown]
  - Death [Fatal]
  - Generalised oedema [Unknown]
